FAERS Safety Report 9928587 (Version 1)
Quarter: 2014Q1

REPORT INFORMATION
  Report Type: Spontaneous
  Country: JP (occurrence: JP)
  Receive Date: 20140227
  Receipt Date: 20140227
  Transmission Date: 20141002
  Serious: Yes (Other)
  Sender: FDA-Public Use
  Company Number: JP-ELI_LILLY_AND_COMPANY-JP201402005963

PATIENT
  Age: 35 Year
  Sex: Male

DRUGS (7)
  1. STRATTERA [Suspect]
     Indication: ATTENTION DEFICIT/HYPERACTIVITY DISORDER
     Dosage: UNK
     Route: 048
     Dates: start: 20131001, end: 20131007
  2. STRATTERA [Suspect]
     Dosage: UNK
     Route: 048
     Dates: start: 20131008
  3. STRATTERA [Suspect]
     Dosage: UNK
     Dates: end: 20140124
  4. JZOLOFT [Concomitant]
     Dosage: 1 DF, QD
     Route: 048
     Dates: start: 20131008
  5. SEDIEL [Concomitant]
     Dosage: UNK
     Route: 048
     Dates: start: 20131008
  6. MYSLEE [Concomitant]
     Dosage: 1 DF, QD
     Route: 048
     Dates: start: 20131008
  7. BENZALIN [Concomitant]
     Dosage: 1 DF, QD
     Route: 048
     Dates: start: 20131008

REACTIONS (2)
  - Suicidal ideation [Recovering/Resolving]
  - Insomnia [Unknown]
